FAERS Safety Report 15533299 (Version 1)
Quarter: 2018Q4

REPORT INFORMATION
  Report Type: Spontaneous
  Country: CN (occurrence: CN)
  Receive Date: 20181019
  Receipt Date: 20181019
  Transmission Date: 20190205
  Serious: Yes (Hospitalization, Other)
  Sender: FDA-Public Use
  Company Number: CN-GLAXOSMITHKLINE-CN2018GSK188781

PATIENT
  Age: 29 Year
  Sex: Male
  Weight: 59 kg

DRUGS (3)
  1. EPIVIR [Suspect]
     Active Substance: LAMIVUDINE
     Indication: ILL-DEFINED DISORDER
     Dosage: 300 MG, QD
     Route: 048
     Dates: start: 20180402, end: 20180723
  2. VIREAD [Suspect]
     Active Substance: TENOFOVIR DISOPROXIL FUMARATE
     Indication: ILL-DEFINED DISORDER
     Dosage: 300 MG, QD
     Route: 048
     Dates: start: 20180402, end: 20180723
  3. STOCRIN [Suspect]
     Active Substance: EFAVIRENZ
     Indication: ILL-DEFINED DISORDER
     Dosage: 600 MG, QD
     Route: 048
     Dates: start: 20180402, end: 20180723

REACTIONS (1)
  - Liver injury [Not Recovered/Not Resolved]

NARRATIVE: CASE EVENT DATE: 20180604
